FAERS Safety Report 12148146 (Version 1)
Quarter: 2016Q1

REPORT INFORMATION
  Report Type: Spontaneous
  Country: US (occurrence: None)
  Receive Date: 20160304
  Receipt Date: 20160304
  Transmission Date: 20160526
  Serious: Yes (Death, Other)
  Sender: FDA-Public Use
  Company Number: US-MDT-ADR-2016-00371

PATIENT
  Sex: Female

DRUGS (1)
  1. COMPOUNDED BACLOFEN INTRATHECAL 4,000MCG/ML [Suspect]
     Active Substance: BACLOFEN
     Indication: MUSCLE SPASTICITY
     Dosage: 1,223MCG/DAY

REACTIONS (2)
  - Malaise [None]
  - Death [None]
